FAERS Safety Report 22340336 (Version 2)
Quarter: 2023Q2

REPORT INFORMATION
  Report Type: Spontaneous
  Country: US (occurrence: US)
  Receive Date: 20230518
  Receipt Date: 20230601
  Transmission Date: 20230722
  Serious: Yes (Other)
  Sender: FDA-Public Use
  Company Number: US-TEVA-2023-US-2886757

PATIENT
  Age: 21 Year
  Sex: Male

DRUGS (10)
  1. CYCLOSPORINE [Suspect]
     Active Substance: CYCLOSPORINE
     Indication: Prophylaxis
     Dosage: TO A MAXIMUM TROUGH LEVEL OF 205 NG/ML
     Route: 065
     Dates: start: 2021
  2. CYCLOSPORINE [Suspect]
     Active Substance: CYCLOSPORINE
     Indication: Transplant rejection
  3. ANTI-THYMOCYTE GLOBULIN (RABBIT) NOS [Suspect]
     Active Substance: LAPINE T-LYMPHOCYTE IMMUNE GLOBULIN
     Indication: Prophylaxis
     Route: 065
     Dates: start: 2021
  4. ANTI-THYMOCYTE GLOBULIN (RABBIT) NOS [Suspect]
     Active Substance: LAPINE T-LYMPHOCYTE IMMUNE GLOBULIN
     Indication: Transplant rejection
  5. MYCOPHENOLIC ACID [Suspect]
     Active Substance: MYCOPHENOLIC ACID
     Indication: Prophylaxis
     Dosage: 1000 MILLIGRAM DAILY;
     Route: 041
     Dates: start: 2021
  6. MYCOPHENOLIC ACID [Suspect]
     Active Substance: MYCOPHENOLIC ACID
     Indication: Transplant rejection
     Dosage: 2160 MILLIGRAM DAILY;
     Route: 065
  7. TACROLIMUS [Suspect]
     Active Substance: TACROLIMUS
     Indication: Prophylaxis
     Dosage: WITH A MAXIMUM TROUGH LEVEL OF 8.3 NG/ML
     Route: 048
     Dates: start: 2021
  8. TACROLIMUS [Suspect]
     Active Substance: TACROLIMUS
     Indication: Transplant rejection
  9. BELATACEPT [Suspect]
     Active Substance: BELATACEPT
     Indication: Prophylaxis
     Dosage: ON DAYS 1, 5, 14, 28, FROM WEEK 8- WEEK 12
     Route: 041
  10. BELATACEPT [Suspect]
     Active Substance: BELATACEPT
     Indication: Transplant rejection
     Route: 041

REACTIONS (2)
  - Posterior reversible encephalopathy syndrome [Recovering/Resolving]
  - Drug ineffective [Unknown]

NARRATIVE: CASE EVENT DATE: 20210101
